FAERS Safety Report 9136398 (Version 1)
Quarter: 2013Q1

REPORT INFORMATION
  Report Type: Spontaneous
  Country: US (occurrence: US)
  Receive Date: 20130304
  Receipt Date: 20130304
  Transmission Date: 20140127
  Serious: No
  Sender: FDA-Public Use
  Company Number: US-ABBOTT-12P-163-0944106-00

PATIENT
  Age: 88 Year
  Sex: Male
  Weight: 111.23 kg

DRUGS (4)
  1. ANDROGEL 1% [Suspect]
     Indication: BLOOD TESTOSTERONE DECREASED
     Dosage: ONE 5 GRAM PACKET PER DAY
     Dates: start: 201106, end: 201202
  2. ANDROGEL 1% [Suspect]
     Dosage: TWO 5 GRAM PACKETS PER DAY
     Dates: start: 201202
  3. UNSPECIFIED INGREDIENT [Suspect]
     Indication: SKIN DISORDER
     Route: 061
     Dates: start: 2005, end: 201205
  4. 25 OTHER UNKNOWN MEDICATIONS [Concomitant]
     Indication: PRODUCT USED FOR UNKNOWN INDICATION

REACTIONS (1)
  - Local swelling [Recovering/Resolving]
